FAERS Safety Report 16439512 (Version 1)
Quarter: 2019Q3

REPORT INFORMATION
  Report Type: Spontaneous
  Country: US (occurrence: US)
  Receive Date: 20190617
  Receipt Date: 20190617
  Transmission Date: 20191004
  Serious: Yes (Disabling)
  Sender: FDA-Public Use
  Company Number: None

PATIENT
  Age: 57 Year
  Sex: Female
  Weight: 67.5 kg

DRUGS (1)
  1. COLESTIPOL [Suspect]
     Active Substance: COLESTIPOL
     Indication: COLITIS
     Dosage: ?          QUANTITY:1 TABLET(S);?
     Route: 048
     Dates: start: 20190611, end: 20190617

REACTIONS (4)
  - Musculoskeletal pain [None]
  - Muscular weakness [None]
  - Hypotonia [None]
  - Neck pain [None]

NARRATIVE: CASE EVENT DATE: 20190615
